FAERS Safety Report 13839966 (Version 1)
Quarter: 2017Q3

REPORT INFORMATION
  Report Type: Spontaneous
  Country: CZ (occurrence: CZ)
  Receive Date: 20170807
  Receipt Date: 20170807
  Transmission Date: 20171127
  Serious: Yes (Life-Threatening, Hospitalization, Other)
  Sender: FDA-Public Use
  Company Number: CZ-TEVA-791533ACC

PATIENT
  Age: 44 Year
  Sex: Female

DRUGS (3)
  1. DOXYBENE 100 MG [Suspect]
     Active Substance: DOXYCYCLINE
     Indication: SUICIDE ATTEMPT
     Dates: start: 201609, end: 201609
  2. STOPEX [Suspect]
     Active Substance: DEXTROMETHORPHAN HYDROBROMIDE
     Indication: SUICIDE ATTEMPT
     Dosage: 900 MILLIGRAM DAILY;
     Dates: start: 201609, end: 201609
  3. CIFLOXINAL [Suspect]
     Active Substance: CIPROFLOXACIN HYDROCHLORIDE
     Indication: SUICIDE ATTEMPT
     Dosage: 1500 MILLIGRAM DAILY;
     Dates: start: 201609, end: 201609

REACTIONS (6)
  - Intentional overdose [Unknown]
  - Overdose [Unknown]
  - Altered state of consciousness [Unknown]
  - Intentional product misuse [Unknown]
  - Suicide attempt [Unknown]
  - Vomiting [Unknown]

NARRATIVE: CASE EVENT DATE: 201609
